FAERS Safety Report 8386736-9 (Version None)
Quarter: 2012Q2

REPORT INFORMATION
  Report Type: 
  Country: None (occurrence: None)
  Receive Date: 20120523
  Receipt Date: 20120523
  Transmission Date: 20120825
  Serious: Yes (Death)
  Sender: FDA-Public Use
  Company Number: None

PATIENT
  Age: 89 Year
  Sex: Female

DRUGS (1)
  1. AVASTIN [Suspect]
     Indication: AGE-RELATED MACULAR DEGENERATION
     Dosage: 1 EVERY SIX WEEKS INTRAOCULAR
     Route: 031
     Dates: start: 20110323, end: 20120301

REACTIONS (1)
  - NO ADVERSE EVENT [None]
